FAERS Safety Report 8233613-X (Version None)
Quarter: 2012Q1

REPORT INFORMATION
  Report Type: 
  Country: None (occurrence: None)
  Receive Date: 20120326
  Receipt Date: 20120315
  Transmission Date: 20120608
  Serious: Yes (Other)
  Sender: FDA-Public Use
  Company Number: PHEH2012US005980

PATIENT
  Sex: Female

DRUGS (2)
  1. ZOMETA [Suspect]
     Dosage: 1 DF, QMO
     Dates: end: 20111201
  2. TAMOXIFEN CITRATE [Concomitant]
     Dosage: 20 MG, QD

REACTIONS (1)
  - STRESS FRACTURE [None]
